FAERS Safety Report 8171859-X (Version None)
Quarter: 2012Q1

REPORT INFORMATION
  Report Type: 
  Country: None (occurrence: None)
  Receive Date: 20120228
  Receipt Date: 20120222
  Transmission Date: 20120608
  Serious: No
  Sender: FDA-Public Use
  Company Number: US-BAYER-2012-018314

PATIENT

DRUGS (1)
  1. MAGNEVIST [Suspect]
     Dosage: UNK UNK, ONCE
     Dates: start: 20120215, end: 20120215

REACTIONS (3)
  - EYE SWELLING [None]
  - URTICARIA [None]
  - ERYTHEMA [None]
